FAERS Safety Report 13957834 (Version 1)
Quarter: 2017Q3

REPORT INFORMATION
  Report Type: Other
  Country: FR (occurrence: FR)
  Receive Date: 20170911
  Receipt Date: 20170911
  Transmission Date: 20171128
  Serious: Yes (Hospitalization)
  Sender: FDA-Public Use
  Company Number: FR-TAKEDA-2017TUS018681

PATIENT
  Age: 53 Year
  Sex: Female

DRUGS (2)
  1. NOCTAMIDE [Suspect]
     Active Substance: LORMETAZEPAM
     Indication: PRODUCT USED FOR UNKNOWN INDICATION
     Dosage: UNK
     Route: 048
     Dates: start: 201701, end: 201704
  2. BRINTELLIX [Suspect]
     Active Substance: VORTIOXETINE HYDROBROMIDE
     Indication: PRODUCT USED FOR UNKNOWN INDICATION
     Dosage: UNK
     Route: 048
     Dates: start: 201701, end: 201704

REACTIONS (2)
  - Pemphigus [Not Recovered/Not Resolved]
  - Linear IgA disease [Not Recovered/Not Resolved]

NARRATIVE: CASE EVENT DATE: 201701
